FAERS Safety Report 7595807-6 (Version None)
Quarter: 2011Q3

REPORT INFORMATION
  Report Type: 
  Country: None (occurrence: None)
  Receive Date: 20110707
  Receipt Date: 20110627
  Transmission Date: 20111222
  Serious: Yes (Hospitalization)
  Sender: FDA-Public Use
  Company Number: FR-JNJFOC-20110612605

PATIENT
  Age: 65 Year
  Sex: Male

DRUGS (2)
  1. NASONEX [Concomitant]
     Indication: PRODUCT USED FOR UNKNOWN INDICATION
  2. REMICADE [Suspect]
     Indication: PSORIATIC ARTHROPATHY
     Route: 042
     Dates: start: 20110201, end: 20110317

REACTIONS (3)
  - PHLEBITIS [None]
  - GASTROENTERITIS VIRAL [None]
  - PULMONARY EMBOLISM [None]
